FAERS Safety Report 5137316-X (Version None)
Quarter: 2006Q4

REPORT INFORMATION
  Report Type: 
  Country: None (occurrence: None)
  Receive Date: 20061030
  Receipt Date: 20051010
  Transmission Date: 20070319
  Serious: No
  Sender: FDA-Public Use
  Company Number: US-GLAXOSMITHKLINE-A0577708A

PATIENT
  Age: 47 Year
  Sex: Female

DRUGS (6)
  1. ADVAIR HFA [Suspect]
     Indication: ASTHMA
     Route: 055
  2. LISINOPRIL [Concomitant]
     Indication: HYPERTENSION
     Dosage: 20MG PER DAY
     Route: 048
  3. DILTIAZEM HCL [Concomitant]
     Indication: HYPERTENSION
     Dosage: 240MG PER DAY
     Route: 048
  4. PROMETRIUM [Concomitant]
     Dosage: 100MG PER DAY
     Route: 048
  5. INDAPAMIDE [Concomitant]
     Indication: HYPERTENSION
     Dosage: 2.5MG PER DAY
     Route: 048
  6. RHINOCORT AQUA [Concomitant]
     Indication: RHINITIS
     Route: 045

REACTIONS (3)
  - ILL-DEFINED DISORDER [None]
  - MALAISE [None]
  - PHARMACEUTICAL PRODUCT COMPLAINT [None]
